FAERS Safety Report 4759567-6 (Version None)
Quarter: 2005Q3

REPORT INFORMATION
  Report Type: 
  Country: None (occurrence: None)
  Receive Date: 20050901
  Receipt Date: 20041208
  Transmission Date: 20060218
  Serious: Yes (Hospitalization)
  Sender: FDA-Public Use
  Company Number: FR-MERCK-0412FRA00029

PATIENT
  Age: 52 Year
  Sex: Female
  Weight: 58 kg

DRUGS (9)
  1. VIOXX [Suspect]
     Indication: RHEUMATOID ARTHRITIS
     Route: 048
     Dates: start: 20030801, end: 20041015
  2. ZOCOR [Suspect]
     Indication: HYPERCHOLESTEROLAEMIA
     Route: 048
     Dates: start: 20020101, end: 20040921
  3. CANDESARTAN CILEXETIL [Suspect]
     Indication: HYPERTENSION
     Route: 048
     Dates: start: 20020101, end: 20040921
  4. ETANERCEPT [Suspect]
     Indication: RHEUMATOID ARTHRITIS
     Route: 058
     Dates: start: 20030718, end: 20040921
  5. ESTRADIOL [Suspect]
     Indication: MENOPAUSAL SYMPTOMS
     Route: 061
     Dates: start: 20020101, end: 20040921
  6. METHOTREXATE [Suspect]
     Indication: RHEUMATOID ARTHRITIS
     Route: 048
     Dates: start: 20030601, end: 20040921
  7. FOSAMAX [Concomitant]
     Indication: OSTEOPOROSIS
     Route: 048
     Dates: start: 20010101
  8. DYDROGESTERONE [Concomitant]
     Indication: MENOPAUSAL SYMPTOMS
     Route: 048
     Dates: start: 20020101
  9. CALCIUM CARBONATE AND CHOLECALCIFEROL [Concomitant]
     Indication: OSTEOPOROSIS
     Route: 048
     Dates: start: 20010101

REACTIONS (5)
  - ANGINA PECTORIS [None]
  - ANXIETY [None]
  - CORONARY ARTERY ATHEROSCLEROSIS [None]
  - CORONARY ARTERY STENOSIS [None]
  - PLATELET COUNT INCREASED [None]
